FAERS Safety Report 9642245 (Version 1)
Quarter: 2013Q4

REPORT INFORMATION
  Report Type: Report from Study
  Country: US (occurrence: US)
  Receive Date: 20131024
  Receipt Date: 20131024
  Transmission Date: 20140711
  Serious: Yes (Hospitalization)
  Sender: FDA-Public Use
  Company Number: GXBR2013US001848

PATIENT
  Age: 69 Year
  Sex: Female
  Weight: 62.5 kg

DRUGS (10)
  1. ENOXAPARIN SODIUM [Suspect]
     Indication: PULMONARY EMBOLISM
     Dosage: 60 MG, BID
     Dates: start: 201309
  2. ENOXAPARIN SODIUM [Suspect]
     Indication: DEEP VEIN THROMBOSIS
  3. SYNTHROID [Concomitant]
     Dosage: UNK DF, UNK
  4. PREDNISONE [Concomitant]
     Dosage: UNK DF, UNK
  5. OMEPRAZOLE [Concomitant]
     Dosage: UNK DF, UNK
  6. LITHIUM [Concomitant]
     Dosage: UNK DF, UNK
  7. LORATADINE [Concomitant]
     Dosage: UNK DF, UNK
  8. TRAMADOL [Concomitant]
     Dosage: UNK DF, UNK
  9. TEMODAR [Concomitant]
     Dosage: UNK DF, UNK
  10. ZOFRAN [Concomitant]
     Dosage: UNK DF, UNK

REACTIONS (4)
  - Escherichia urinary tract infection [Recovered/Resolved]
  - Bacteraemia [Recovered/Resolved]
  - Hypertension [Recovered/Resolved]
  - Fatigue [Unknown]
